FAERS Safety Report 17802670 (Version 1)
Quarter: 2020Q2

REPORT INFORMATION
  Report Type: Spontaneous
  Country: US (occurrence: US)
  Receive Date: 20200519
  Receipt Date: 20200519
  Transmission Date: 20200714
  Serious: Yes (Death, Life-Threatening, Hospitalization, Disabling)
  Sender: FDA-Public Use
  Company Number: None

PATIENT
  Age: 64 Year
  Sex: Male
  Weight: 60.75 kg

DRUGS (6)
  1. OXYCODONE [Concomitant]
     Active Substance: OXYCODONE
  2. SALT TABS [Concomitant]
     Active Substance: SODIUM CHLORIDE
  3. GABAPENTIN. [Concomitant]
     Active Substance: GABAPENTIN
  4. KEYTRUDA [Suspect]
     Active Substance: PEMBROLIZUMAB
     Indication: SQUAMOUS CELL CARCINOMA OF HEAD AND NECK
     Dosage: ?          QUANTITY:1 INJECTION(S);OTHER FREQUENCY:3 WEEKS;?
     Route: 042
     Dates: start: 20191209, end: 20200212
  5. TRAZODONE [Concomitant]
     Active Substance: TRAZODONE HYDROCHLORIDE
  6. TEMAZAPAM [Concomitant]
     Active Substance: TEMAZEPAM

REACTIONS (7)
  - Feeding disorder [None]
  - Loss of personal independence in daily activities [None]
  - Dysstasia [None]
  - Weight decreased [None]
  - Fall [None]
  - Incontinence [None]
  - Squamous cell carcinoma of head and neck [None]
